FAERS Safety Report 8468132-9 (Version None)
Quarter: 2012Q2

REPORT INFORMATION
  Report Type: 
  Country: None (occurrence: None)
  Receive Date: 20120626
  Receipt Date: 20120613
  Transmission Date: 20120825
  Serious: Yes (Hospitalization)
  Sender: FDA-Public Use
  Company Number: US-COVIDIEN/TYCO HEALTHCARE/MALLINCKRODT-T201202574

PATIENT
  Age: 5 Year
  Sex: Male

DRUGS (7)
  1. METHYLIN [Suspect]
     Indication: ABNORMAL BEHAVIOUR
     Dosage: UNK
  2. VALPROIC ACID [Concomitant]
     Indication: CONVULSION
  3. DEXAMPHETAMINE [Suspect]
     Indication: ABNORMAL BEHAVIOUR
     Dosage: UNK
  4. ARIPIPRAZOLE [Suspect]
     Dosage: 2.5 MG, UNK
  5. ARIPIPRAZOLE [Suspect]
     Indication: ABNORMAL BEHAVIOUR
     Dosage: 2.5 MG, UNK
  6. ARIPIPRAZOLE [Suspect]
     Dosage: 5 MG, BID
  7. ARIPIPRAZOLE [Suspect]
     Dosage: 5 MG, UNK

REACTIONS (4)
  - COORDINATION ABNORMAL [None]
  - MUSCULAR WEAKNESS [None]
  - ATAXIA [None]
  - CHOREA [None]
